FAERS Safety Report 6100797-9 (Version None)
Quarter: 2009Q1

REPORT INFORMATION
  Report Type: 
  Country: None (occurrence: None)
  Receive Date: 20090303
  Receipt Date: 20090218
  Transmission Date: 20090719
  Serious: Yes (Hospitalization, Other)
  Sender: FDA-Public Use
  Company Number: BR-ELI_LILLY_AND_COMPANY-BR200902004677

PATIENT
  Sex: Female
  Weight: 65 kg

DRUGS (10)
  1. FORTEO [Suspect]
     Indication: OSTEOPOROSIS
     Dosage: UNK, UNKNOWN
     Route: 058
     Dates: start: 20090101
  2. DAFLON [Concomitant]
     Dosage: 500 MG, 2/D
     Route: 048
  3. AAS [Concomitant]
     Dosage: UNK, UNKNOWN
     Route: 048
  4. MODURETIC 5-50 [Concomitant]
     Dosage: 25 MG, DAILY (1/D)
     Route: 048
  5. ENALAPRIL [Concomitant]
     Dosage: 5 MG, 2/D
     Route: 048
  6. GINKGO [Concomitant]
     Dosage: UNK, 2/D
     Route: 048
  7. EUTHYROX [Concomitant]
     Dosage: UNK, DAILY (1/D)
     Route: 048
  8. CRESTOR [Concomitant]
     Indication: BLOOD CHOLESTEROL
     Dosage: 10 MG, QOD
     Route: 048
  9. MELOXICAM [Concomitant]
     Dosage: UNK, 2/D
     Route: 048
  10. ATENOLOL [Concomitant]
     Dosage: 25 MG, DAILY (1/D)
     Route: 048

REACTIONS (3)
  - ARRHYTHMIA [None]
  - CARDIAC FAILURE [None]
  - DYSPNOEA [None]
